FAERS Safety Report 7953927-8 (Version None)
Quarter: 2011Q4

REPORT INFORMATION
  Report Type: 
  Country: None (occurrence: None)
  Receive Date: 20111202
  Receipt Date: 20111122
  Transmission Date: 20120403
  Serious: Yes (Hospitalization)
  Sender: FDA-Public Use
  Company Number: IT-ABBOTT-11P-083-0875248-03

PATIENT
  Sex: Female
  Weight: 47 kg

DRUGS (5)
  1. HUMIRA [Suspect]
     Route: 058
     Dates: end: 20100820
  2. PREDNISONE [Concomitant]
     Indication: CROHN'S DISEASE
     Dosage: 40 MG WITH PROGRESSIVE TAPERING
     Dates: start: 20090928
  3. PREDNISONE [Concomitant]
     Dosage: 40 MG WITH PROGRESSIVE TAPERING
     Dates: start: 20091115
  4. HUMIRA [Suspect]
     Indication: CROHN'S DISEASE
     Route: 058
     Dates: start: 20090410, end: 20090410
  5. PANTOPRAZOLE SODIUM [Concomitant]
     Indication: CROHN'S DISEASE
     Dates: start: 20091105

REACTIONS (2)
  - POSTOPERATIVE FEVER [None]
  - ENTEROSTOMY CLOSURE [None]
